FAERS Safety Report 4573516-5 (Version None)
Quarter: 2005Q1

REPORT INFORMATION
  Report Type: 
  Country: None (occurrence: None)
  Receive Date: 20050208
  Receipt Date: 20040908
  Transmission Date: 20050727
  Serious: Yes (Other)
  Sender: FDA-Public Use
  Company Number: US-GLAXOSMITHKLINE-A0524924A

PATIENT
  Age: 8 Year
  Sex: Female

DRUGS (5)
  1. PAXIL [Suspect]
     Dosage: 10MG PER DAY
     Route: 048
  2. KLONOPIN [Concomitant]
     Route: 048
  3. ZYRTEC [Concomitant]
  4. ATIVAN [Concomitant]
  5. NEURONTIN [Concomitant]

REACTIONS (1)
  - MANIA [None]
